FAERS Safety Report 10426939 (Version 1)
Quarter: 2014Q3

REPORT INFORMATION
  Report Type: Spontaneous
  Country: US (occurrence: US)
  Receive Date: 20140903
  Receipt Date: 20140903
  Transmission Date: 20150326
  Serious: No
  Sender: FDA-Public Use
  Company Number: US-ASTRAZENECA-2014SE63186

PATIENT
  Age: 52 Year
  Sex: Male
  Weight: 90.7 kg

DRUGS (1)
  1. NEXIUM [Suspect]
     Active Substance: ESOMEPRAZOLE MAGNESIUM
     Indication: GASTROOESOPHAGEAL REFLUX DISEASE
     Route: 048
     Dates: start: 2009

REACTIONS (12)
  - Pain in extremity [Unknown]
  - Dyspepsia [Unknown]
  - Pain [Unknown]
  - Off label use [Unknown]
  - Drug ineffective [Unknown]
  - Peripheral swelling [Unknown]
  - Arthritis [Unknown]
  - Arthralgia [Unknown]
  - Peripheral swelling [Unknown]
  - Intentional product misuse [Unknown]
  - Coeliac disease [Unknown]
  - Swelling [Unknown]

NARRATIVE: CASE EVENT DATE: 2009
